FAERS Safety Report 20181090 (Version 1)
Quarter: 2021Q4

REPORT INFORMATION
  Report Type: Report from Study
  Country: US (occurrence: US)
  Receive Date: 20211214
  Receipt Date: 20211214
  Transmission Date: 20220303
  Serious: Yes (Hospitalization)
  Sender: FDA-Public Use
  Company Number: US-TAKEDA-2021TUS078453

PATIENT
  Age: 81 Year
  Sex: Male
  Weight: 57 kg

DRUGS (1)
  1. BRIGATINIB [Suspect]
     Active Substance: BRIGATINIB
     Indication: Lung neoplasm malignant
     Dosage: 180 MILLIGRAM, QD
     Route: 065
     Dates: end: 20211130

REACTIONS (3)
  - Illness [Unknown]
  - Weight decreased [Unknown]
  - Medication error [Unknown]

NARRATIVE: CASE EVENT DATE: 20211130
